FAERS Safety Report 23128124 (Version 2)
Quarter: 2023Q4

REPORT INFORMATION
  Report Type: Spontaneous
  Country: US (occurrence: US)
  Receive Date: 20231031
  Receipt Date: 20231113
  Transmission Date: 20240110
  Serious: Yes (Life-Threatening, Hospitalization)
  Sender: FDA-Public Use
  Company Number: US-TEVA-2023-US-2940199

PATIENT
  Age: 39 Year
  Sex: Male

DRUGS (12)
  1. PROPOFOL [Suspect]
     Active Substance: PROPOFOL
     Indication: Alcohol withdrawal syndrome
     Route: 050
  2. HALOPERIDOL [Suspect]
     Active Substance: HALOPERIDOL
     Indication: Antipsychotic therapy
     Route: 065
  3. LORAZEPAM [Suspect]
     Active Substance: LORAZEPAM
     Indication: Alcohol withdrawal syndrome
     Route: 050
  4. QUETIAPINE [Suspect]
     Active Substance: QUETIAPINE
     Indication: Agitation
     Route: 065
  5. QUETIAPINE [Suspect]
     Active Substance: QUETIAPINE
     Indication: Antipsychotic therapy
  6. PHENOBARBITAL [Suspect]
     Active Substance: PHENOBARBITAL
     Indication: Alcohol withdrawal syndrome
     Route: 065
  7. FENTANYL [Concomitant]
     Active Substance: FENTANYL\FENTANYL CITRATE
     Indication: Sedative therapy
     Route: 065
  8. MIDAZOLAM [Concomitant]
     Active Substance: MIDAZOLAM
     Indication: Sedative therapy
     Route: 065
  9. KETAMINE [Concomitant]
     Active Substance: KETAMINE
     Indication: Sedative therapy
     Route: 065
  10. ROCURONIUM [Concomitant]
     Active Substance: ROCURONIUM BROMIDE
     Indication: Neuromuscular blocking therapy
     Route: 065
  11. DANTROLENE [Concomitant]
     Active Substance: DANTROLENE
     Indication: Evidence based treatment
     Route: 065
  12. CYPROHEPTADINE [Concomitant]
     Active Substance: CYPROHEPTADINE
     Indication: Evidence based treatment
     Route: 065

REACTIONS (5)
  - Hyperthermia [Unknown]
  - Propofol infusion syndrome [Unknown]
  - Multiple organ dysfunction syndrome [Unknown]
  - Brain injury [Unknown]
  - Drug ineffective [Unknown]
